FAERS Safety Report 9747279 (Version 1)
Quarter: 2013Q4

REPORT INFORMATION
  Report Type: Report from Study
  Country: ZA (occurrence: ZA)
  Receive Date: 20131212
  Receipt Date: 20131212
  Transmission Date: 20140711
  Serious: Yes (Hospitalization)
  Sender: FDA-Public Use
  Company Number: ZA-ROCHE-1318839

PATIENT
  Age: 56 Year
  Sex: Male

DRUGS (6)
  1. MIRCERA [Suspect]
     Indication: NEPHROGENIC ANAEMIA
     Route: 058
     Dates: start: 20110418
  2. MIRCERA [Suspect]
     Route: 058
     Dates: start: 20111024
  3. MIRCERA [Suspect]
     Route: 058
     Dates: start: 20120806
  4. MIRCERA [Suspect]
     Route: 058
     Dates: start: 20120927
  5. MIRCERA [Suspect]
     Route: 058
     Dates: start: 20130227
  6. MIRCERA [Suspect]
     Route: 058
     Dates: start: 20130710

REACTIONS (2)
  - Nausea [Unknown]
  - Vomiting [Unknown]
